FAERS Safety Report 12495726 (Version 1)
Quarter: 2016Q2

REPORT INFORMATION
  Report Type: Spontaneous
  Country: NO (occurrence: NO)
  Receive Date: 20160624
  Receipt Date: 20160624
  Transmission Date: 20160815
  Serious: Yes (Life-Threatening)
  Sender: FDA-Public Use
  Company Number: NO-TEVA-668403ACC

PATIENT
  Age: 4 Year
  Sex: Female

DRUGS (6)
  1. VENTOLINE [Concomitant]
     Active Substance: ALBUTEROL
     Indication: ASTHMA
  2. MIVACRON [Suspect]
     Active Substance: MIVACURIUM CHLORIDE
     Indication: ENDOTRACHEAL INTUBATION
     Dates: start: 20160526, end: 20160526
  3. ORFIRIL [Concomitant]
     Active Substance: VALPROIC ACID
     Indication: EPILEPSY
  4. FENTANYL. [Suspect]
     Active Substance: FENTANYL
     Indication: INDUCTION OF ANAESTHESIA
     Dates: start: 20160526, end: 20160526
  5. ATROPIN [Suspect]
     Active Substance: ATROPINE
     Dates: start: 20160526, end: 20160526
  6. PROPOFOL. [Suspect]
     Active Substance: PROPOFOL
     Indication: INDUCTION OF ANAESTHESIA
     Dates: start: 20160526, end: 20160526

REACTIONS (1)
  - Bronchospasm [Recovered/Resolved]

NARRATIVE: CASE EVENT DATE: 20160526
